FAERS Safety Report 13042664 (Version 1)
Quarter: 2016Q4

REPORT INFORMATION
  Report Type: Report from Study
  Country: FR (occurrence: GB)
  Receive Date: 20161219
  Receipt Date: 20161219
  Transmission Date: 20170207
  Serious: Yes (Other)
  Sender: FDA-Public Use
  Company Number: FR-PFIZER INC-2016578620

PATIENT
  Age: 1 Month
  Sex: Female

DRUGS (3)
  1. SOMATOSTATIN [Concomitant]
     Active Substance: SOMATOSTATIN
     Dosage: 20 UG/KG, DAILY
  2. RAPAMUNE [Suspect]
     Active Substance: SIROLIMUS
     Indication: HYPERINSULINISM
     Dosage: 1.4 MG/M2, DAILY (MAXIMAL DOSE)
     Route: 048
  3. GLUCOSE [Concomitant]
     Active Substance: DEXTROSE
     Indication: HYPERINSULINISM
     Dosage: 15.9 MG/KG, PER MINUTE
     Route: 042

REACTIONS (1)
  - Pancreatic insufficiency [Unknown]
